FAERS Safety Report 4646496-1 (Version None)
Quarter: 2005Q2

REPORT INFORMATION
  Report Type: 
  Country: None (occurrence: None)
  Receive Date: 20050427
  Receipt Date: 20040526
  Transmission Date: 20051028
  Serious: No
  Sender: FDA-Public Use
  Company Number: US-GLAXOSMITHKLINE-A0512225A

PATIENT
  Sex: Male

DRUGS (2)
  1. FLOVENT [Suspect]
     Indication: ASTHMA
     Dosage: 2PUFF TWICE PER DAY
     Route: 055
     Dates: start: 20030501
  2. ALBUTEROL [Concomitant]

REACTIONS (5)
  - COUGH [None]
  - DYSPHONIA [None]
  - MUCOUS MEMBRANE DISORDER [None]
  - RASH [None]
  - TONGUE DISCOLOURATION [None]
